FAERS Safety Report 8283647-4 (Version None)
Quarter: 2012Q2

REPORT INFORMATION
  Report Type: 
  Country: None (occurrence: None)
  Receive Date: 20120413
  Receipt Date: 20120403
  Transmission Date: 20120825
  Serious: Yes (Hospitalization, Other)
  Sender: FDA-Public Use
  Company Number: US-CELGENEUS-163-21880-12020314

PATIENT
  Sex: Male
  Weight: 82.9 kg

DRUGS (12)
  1. PROPYL-THIOURACIL [Concomitant]
     Dosage: 50 MILLIGRAM
     Route: 065
  2. PROTONIX [Concomitant]
     Dosage: 40 MILLIGRAM
     Route: 065
  3. REVLIMID [Suspect]
     Dosage: 15 MILLIGRAM
     Route: 048
  4. BISOPROLOL FUMARATE [Concomitant]
     Dosage: 5 MILLIGRAM
     Route: 065
  5. COUMADIN [Concomitant]
     Dosage: 3 MILLIGRAM
     Route: 065
  6. PERCOCET [Concomitant]
     Indication: PAIN
     Route: 065
  7. ZOMETA [Concomitant]
     Route: 065
     Dates: start: 20081201, end: 20111101
  8. MAGNESIUM OXIDE [Concomitant]
     Dosage: 400 MILLIGRAM
     Route: 065
  9. REVLIMID [Suspect]
     Indication: MULTIPLE MYELOMA
     Dosage: 25 MILLIGRAM
     Route: 048
     Dates: start: 20090522
  10. DILTIAZEM [Concomitant]
     Dosage: 240 MILLIGRAM
     Route: 065
  11. NITROGLYCERIN [Concomitant]
     Route: 065
  12. LACTOBACILLUS [Concomitant]
     Dosage: 1 CAPSULE
     Route: 048

REACTIONS (5)
  - ATRIAL FIBRILLATION [None]
  - NAUSEA [None]
  - VOMITING [None]
  - OEDEMA PERIPHERAL [None]
  - HYPERTHYROIDISM [None]
